FAERS Safety Report 21329603 (Version 2)
Quarter: 2022Q4

REPORT INFORMATION
  Report Type: Other
  Country: CA (occurrence: None)
  Receive Date: 20220913
  Receipt Date: 20221230
  Transmission Date: 20230112
  Serious: Yes (Other)
  Sender: FDA-Public Use
  Company Number: CA-ROCHE-1831885

PATIENT
  Age: 58 Year
  Sex: Female
  Weight: 70 kg

DRUGS (23)
  1. ACTEMRA [Suspect]
     Active Substance: TOCILIZUMAB
     Indication: Rheumatoid arthritis
     Route: 042
     Dates: start: 20120816, end: 20121108
  2. ACTEMRA [Suspect]
     Active Substance: TOCILIZUMAB
     Route: 042
     Dates: start: 20121206, end: 20131107
  3. ACTEMRA [Suspect]
     Active Substance: TOCILIZUMAB
     Route: 042
     Dates: start: 20131205, end: 20140522
  4. ACTEMRA [Suspect]
     Active Substance: TOCILIZUMAB
     Route: 042
     Dates: start: 20140619, end: 20140717
  5. ACTEMRA [Suspect]
     Active Substance: TOCILIZUMAB
     Dosage: NO PIRS RECEIVED BETWEEN 05-JAN-2017 TO 04-JUN-2018. DOSAGE NOTED ACCORDING TO PRESCRIPTION ENROLMEN
     Route: 042
     Dates: start: 20140814, end: 20180705
  6. ACTEMRA [Suspect]
     Active Substance: TOCILIZUMAB
     Dosage: INFUSION #66
     Route: 042
     Dates: start: 20171013
  7. ACTEMRA [Suspect]
     Active Substance: TOCILIZUMAB
     Route: 042
     Dates: start: 20180906, end: 20190716
  8. ACTEMRA [Suspect]
     Active Substance: TOCILIZUMAB
     Route: 042
     Dates: start: 20190812, end: 20191202
  9. ACTEMRA [Suspect]
     Active Substance: TOCILIZUMAB
     Dosage: ONGOING
     Route: 042
     Dates: start: 20191230, end: 20201201
  10. ACTEMRA [Suspect]
     Active Substance: TOCILIZUMAB
     Route: 042
     Dates: start: 20180807, end: 20190716
  11. ACTEMRA [Suspect]
     Active Substance: TOCILIZUMAB
     Route: 042
     Dates: start: 20190812, end: 20191202
  12. ACTEMRA [Suspect]
     Active Substance: TOCILIZUMAB
     Route: 042
     Dates: start: 20191230, end: 20201201
  13. ACTEMRA [Suspect]
     Active Substance: TOCILIZUMAB
     Dosage: ONGOING
     Route: 042
     Dates: start: 20201229
  14. MORPHINE SULFATE [Suspect]
     Active Substance: MORPHINE SULFATE
     Indication: Product used for unknown indication
     Route: 065
  15. FOLIC ACID [Concomitant]
     Active Substance: FOLIC ACID
     Route: 065
  16. PLAQUENIL [Concomitant]
     Active Substance: HYDROXYCHLOROQUINE SULFATE
  17. CORTISONE [Concomitant]
     Active Substance: CORTISONE
     Indication: Osteoarthritis
     Dosage: FOR 3 WEEKS
     Route: 014
  18. DOMPERIDONE [Concomitant]
     Active Substance: DOMPERIDONE
     Dates: start: 20130509
  19. LOSEC [Concomitant]
     Active Substance: OMEPRAZOLE
  20. CRESTOR [Concomitant]
     Active Substance: ROSUVASTATIN CALCIUM
     Dates: start: 20131125
  21. LEVOLEUCOVORIN CALCIUM [Concomitant]
     Active Substance: LEVOLEUCOVORIN CALCIUM
  22. NAPROXEN [Concomitant]
     Active Substance: NAPROXEN
  23. MOTILIUM [Concomitant]
     Active Substance: DOMPERIDONE

REACTIONS (41)
  - Nephrolithiasis [Not Recovered/Not Resolved]
  - Rheumatoid arthritis [Unknown]
  - Sleep apnoea syndrome [Unknown]
  - Cardiac failure [Recovering/Resolving]
  - Pulmonary mass [Unknown]
  - Urinary tract infection bacterial [Unknown]
  - Osteoarthritis [Not Recovered/Not Resolved]
  - Central nervous system neoplasm [Unknown]
  - Heart valve incompetence [Unknown]
  - Herpes zoster [Recovered/Resolved]
  - Pelvic fracture [Recovering/Resolving]
  - Nausea [Unknown]
  - Abdominal distension [Unknown]
  - Faeces discoloured [Unknown]
  - Blood pressure systolic increased [Unknown]
  - Ear infection [Recovered/Resolved]
  - Blood pressure diastolic abnormal [Unknown]
  - Skin laceration [Recovering/Resolving]
  - Body temperature decreased [Unknown]
  - Arthralgia [Recovered/Resolved]
  - Disability assessment scale score increased [Recovering/Resolving]
  - Vomiting [Unknown]
  - Constipation [Unknown]
  - Epicondylitis [Unknown]
  - Oxygen saturation decreased [Unknown]
  - Heart rate decreased [Unknown]
  - Weight decreased [Unknown]
  - Neck pain [Unknown]
  - Blood pressure diastolic decreased [Unknown]
  - Headache [Unknown]
  - Blood pressure systolic abnormal [Unknown]
  - Amnesia [Unknown]
  - Macrocytosis [Unknown]
  - Blood pressure fluctuation [Unknown]
  - Pain in extremity [Not Recovered/Not Resolved]
  - Hypotension [Unknown]
  - Fall [Unknown]
  - Rib fracture [Unknown]
  - Osteitis [Unknown]
  - Viral skin infection [Unknown]
  - Off label use [Unknown]

NARRATIVE: CASE EVENT DATE: 20131017
